FAERS Safety Report 9603230 (Version 4)
Quarter: 2013Q4

REPORT INFORMATION
  Report Type: Report from Study
  Country: US (occurrence: US)
  Receive Date: 20131007
  Receipt Date: 20131216
  Transmission Date: 20140711
  Serious: Yes (Death, Hospitalization)
  Sender: FDA-Public Use
  Company Number: US-ACTELION-A-US2013-89261

PATIENT
  Age: 77 Year
  Sex: Male

DRUGS (2)
  1. TRACLEER [Suspect]
     Indication: PULMONARY ARTERIAL HYPERTENSION
     Dosage: UNK
     Route: 048
     Dates: start: 20130911, end: 20131113
  2. ADCIRCA [Concomitant]

REACTIONS (4)
  - Death [Fatal]
  - Aortic valve disease [Not Recovered/Not Resolved]
  - Aortic valve replacement [Not Recovered/Not Resolved]
  - Mechanical ventilation [Not Recovered/Not Resolved]
